FAERS Safety Report 25881051 (Version 2)
Quarter: 2025Q4

REPORT INFORMATION
  Report Type: Spontaneous
  Country: US (occurrence: US)
  Receive Date: 20251004
  Receipt Date: 20251013
  Transmission Date: 20260117
  Serious: Yes (Other)
  Sender: ACCORD
  Company Number: US-MLMSERVICE-20250917-PI644424-00218-1

PATIENT
  Age: 64 Year
  Sex: Male

DRUGS (4)
  1. METHOTREXATE [Suspect]
     Active Substance: METHOTREXATE
     Indication: Pulmonary sarcoidosis
  2. METHYLPREDNISOLONE [Suspect]
     Active Substance: METHYLPREDNISOLONE
     Indication: Pulmonary sarcoidosis
  3. PREDNISONE [Suspect]
     Active Substance: PREDNISONE
     Indication: Pulmonary sarcoidosis
     Dosage: TITRATED UP TO 40 MG OF PREDNISONE DAILY
  4. FOLIC ACID [Concomitant]
     Active Substance: FOLIC ACID
     Indication: Pulmonary sarcoidosis

REACTIONS (2)
  - Mycobacterium marinum infection [Unknown]
  - Off label use [Unknown]
